FAERS Safety Report 4627007-3 (Version None)
Quarter: 2005Q1

REPORT INFORMATION
  Report Type: 
  Country: None (occurrence: None)
  Receive Date: 20050331
  Receipt Date: 20050323
  Transmission Date: 20050727
  Serious: Yes (Other)
  Sender: FDA-Public Use
  Company Number: 2005049930

PATIENT
  Age: 75 Year
  Sex: Female

DRUGS (1)
  1. FRAGMIN [Suspect]
     Indication: FEMORAL NECK FRACTURE
     Dosage: 5000 I.U. (5000 I.U., 1 IN 1 D)
     Dates: start: 20050301

REACTIONS (3)
  - DRUG INEFFECTIVE [None]
  - PHLEBITIS [None]
  - PULMONARY EMBOLISM [None]
